FAERS Safety Report 8681932 (Version 2)
Quarter: 2012Q4

REPORT INFORMATION
  Report Type: 
  Country: US (occurrence: US)
  Receive Date: 20120725
  Receipt Date: 20121015
  Transmission Date: 20130627
  Serious: Yes (Other)
  Sender: FDA-Public Use
  Company Number: PHEH2012US014275

PATIENT
  Age: 66 Year
  Sex: Female
  Weight: 70 kg

DRUGS (5)
  1. RECLAST [Suspect]
     Indication: OSTEOPOROSIS
     Dosage: 5 mg, UNK
     Route: 042
     Dates: start: 20120719
  2. FLEXERIL [Concomitant]
     Indication: MUSCLE SPASMS
     Dosage: 10 mg, PRN
     Dates: start: 20120620
  3. FOLIC ACID [Concomitant]
     Dosage: 1 mg, UNK
     Dates: start: 20120618
  4. METHOTREXATE [Concomitant]
     Dosage: 20 mg, UNK
     Dates: start: 20120618
  5. VOLTAREN                           /00372303/ [Concomitant]
     Dates: start: 20120618, end: 20120618

REACTIONS (3)
  - Loss of consciousness [Unknown]
  - Syncope [Recovered/Resolved]
  - Chills [Unknown]
